FAERS Safety Report 12440482 (Version 2)
Quarter: 2016Q3

REPORT INFORMATION
  Report Type: Spontaneous
  Country: IT (occurrence: IT)
  Receive Date: 20160606
  Receipt Date: 20160715
  Transmission Date: 20161109
  Serious: Yes (Disabling)
  Sender: FDA-Public Use
  Company Number: IT-TEVA-665042ACC

PATIENT
  Age: 61 Year
  Sex: Female

DRUGS (9)
  1. OLANZAPINA TEVA - 10 MG COMPRESSE RIVESTITE CON FILM - TEVA B.V. [Suspect]
     Active Substance: OLANZAPINE
     Dates: start: 201603
  2. PARIET - 10 MG COMPRESSE GASTRORESISTENTI-JANSS EN CILAG S.P.A. [Concomitant]
     Indication: PRODUCT USED FOR UNKNOWN INDICATION
     Dosage: 1 DF
     Route: 048
  3. CHOLECALCIFEROL [Concomitant]
     Active Substance: CHOLECALCIFEROL
     Indication: PRODUCT USED FOR UNKNOWN INDICATION
     Dosage: 20 GTT
     Route: 048
  4. MODITEN DEPOT - 25 MG/1 ML SOLUZIONE INIETTABILE A RILASCIO PROLUNGATO [Concomitant]
     Active Substance: FLUPHENAZINE HYDROCHLORIDE
     Indication: PRODUCT USED FOR UNKNOWN INDICATION
     Dosage: 1 DF
     Route: 030
  5. OLANZAPINA TEVA - 10 MG COMPRESSE RIVESTITE CON FILM - TEVA B.V. [Suspect]
     Active Substance: OLANZAPINE
     Indication: PSYCHOTIC DISORDER
     Dosage: 2 DOSAGE FORMS DAILY;
     Route: 048
  6. EFEXOR - 75 MG CAPSULE RIGIDE A RILASCIO PROLUNGATO-PFIZER ITALIA S.R. [Concomitant]
     Indication: PRODUCT USED FOR UNKNOWN INDICATION
     Dosage: 2 DF
     Route: 048
  7. GADRAL - 800 MG/10 ML SOSPENSIONE ORALE-THERABEL GIENNE PHARMA S.P.A. [Concomitant]
     Indication: PRODUCT USED FOR UNKNOWN INDICATION
     Dosage: 2 DF
     Route: 048
  8. SURMONTIL - 100 MG COMPRESSE RIVESTITE CON FILM-SANOFI S.P.A. [Concomitant]
     Indication: PRODUCT USED FOR UNKNOWN INDICATION
     Dosage: 50 MG
     Route: 048
  9. MINIAS - 2.5 MG/ML GOCCE ORALI SOLUZIONE-BAYER S.P.A. [Concomitant]
     Indication: PRODUCT USED FOR UNKNOWN INDICATION
     Dosage: 20 GTT
     Route: 048

REACTIONS (2)
  - Psychiatric decompensation [Unknown]
  - Product substitution issue [Unknown]

NARRATIVE: CASE EVENT DATE: 20130101
